FAERS Safety Report 5334214-3 (Version None)
Quarter: 2007Q2

REPORT INFORMATION
  Report Type: 
  Country: None (occurrence: None)
  Receive Date: 20070525
  Receipt Date: 20070516
  Transmission Date: 20071010
  Serious: No
  Sender: FDA-Public Use
  Company Number: A0624583A

PATIENT
  Sex: Female

DRUGS (4)
  1. BACTROBAN [Suspect]
     Route: 045
     Dates: start: 20050101
  2. BACTROBAN [Suspect]
     Dates: start: 20050101
  3. MULTIPLE MEDICATIONS [Concomitant]
  4. HEART MEDICATION [Concomitant]

REACTIONS (2)
  - DRUG INEFFECTIVE [None]
  - NASAL DISCOMFORT [None]
